FAERS Safety Report 21917147 (Version 1)
Quarter: 2023Q1

REPORT INFORMATION
  Report Type: Spontaneous
  Country: RO (occurrence: RO)
  Receive Date: 20230126
  Receipt Date: 20230126
  Transmission Date: 20230418
  Serious: Yes (Life-Threatening)
  Sender: FDA-Public Use
  Company Number: None

PATIENT
  Age: 8 Year
  Sex: Female

DRUGS (1)
  1. TROPICAMIDE [Suspect]
     Active Substance: TROPICAMIDE
     Indication: Ophthalmological examination
     Dosage: ADMINISTRATION 3 TIMES AT 10 MINUTE INTERVALS/ OCULAR USE
     Route: 050
     Dates: start: 20230112, end: 20230112

REACTIONS (4)
  - Pyrexia [Not Recovered/Not Resolved]
  - Blindness [Recovered/Resolved]
  - Muscular weakness [Not Recovered/Not Resolved]
  - Headache [Not Recovered/Not Resolved]

NARRATIVE: CASE EVENT DATE: 20230112
